FAERS Safety Report 20897917 (Version 1)
Quarter: 2022Q2

REPORT INFORMATION
  Report Type: Spontaneous
  Country: US (occurrence: US)
  Receive Date: 20220531
  Receipt Date: 20220531
  Transmission Date: 20220721
  Serious: No
  Sender: FDA-Public Use
  Company Number: US-PFIZER INC-202200771430

PATIENT
  Age: 78 Year
  Sex: Female
  Weight: 77.11 kg

DRUGS (3)
  1. PAXLOVID [Suspect]
     Active Substance: NIRMATRELVIR\RITONAVIR
     Indication: COVID-19 treatment
     Dosage: [PF-07321332 300 MG]/[RITONAVIR 100 MG]; 2X/DAY
     Route: 048
     Dates: start: 20220526
  2. TYLENOL COLD HEAD CONGESTION SEVERE [GUAIFENESIN;PARACETAMOL;PHENYLEPH [Concomitant]
     Indication: Nasopharyngitis
     Dosage: 1 DF, 2X/DAY
     Route: 048
     Dates: start: 202205
  3. TYLENOL COLD HEAD CONGESTION SEVERE [GUAIFENESIN;PARACETAMOL;PHENYLEPH [Concomitant]
     Indication: Rhinorrhoea

REACTIONS (6)
  - Dysgeusia [Recovering/Resolving]
  - Nausea [Unknown]
  - Vomiting [Unknown]
  - Pyrexia [Unknown]
  - Hyperhidrosis [Unknown]
  - Diarrhoea [Unknown]

NARRATIVE: CASE EVENT DATE: 20220526
